FAERS Safety Report 8024821-1 (Version None)
Quarter: 2012Q1

REPORT INFORMATION
  Report Type: 
  Country: None (occurrence: None)
  Receive Date: 20120105
  Receipt Date: 20111227
  Transmission Date: 20120608
  Serious: Yes (Other)
  Sender: FDA-Public Use
  Company Number: JP-TEVA-310109ISR

PATIENT
  Sex: Male

DRUGS (8)
  1. TACROLIMUS [Suspect]
     Indication: RHEUMATOID ARTHRITIS
     Dates: start: 20110101, end: 20110101
  2. PREDNISOLONE [Suspect]
     Indication: RHEUMATOID ARTHRITIS
     Dosage: 7.5 MILLIGRAM;
     Route: 048
  3. METHOTREXATE [Suspect]
     Indication: RHEUMATOID ARTHRITIS
  4. ISONIAZID [Concomitant]
  5. LOXONIN [Concomitant]
  6. ALLOPURINOL [Concomitant]
  7. AMLODIPINE [Concomitant]
  8. ORENCIA [Suspect]
     Indication: RHEUMATOID ARTHRITIS
     Route: 042

REACTIONS (1)
  - PLEURISY [None]
